FAERS Safety Report 10128688 (Version 1)
Quarter: 2014Q2

REPORT INFORMATION
  Report Type: Spontaneous
  Country: CA (occurrence: CA)
  Receive Date: 20140428
  Receipt Date: 20140428
  Transmission Date: 20141212
  Serious: Yes (Hospitalization)
  Sender: FDA-Public Use
  Company Number: CA-VERTEX PHARMACEUTICALS INC-2014-002052

PATIENT
  Age: 58 Year
  Sex: Female

DRUGS (4)
  1. INCIVEK [Suspect]
     Indication: HEPATITIS C
     Dosage: 750 MG, TID
     Route: 048
  2. PEGASYS [Suspect]
     Indication: HEPATITIS C
     Dosage: 180 ?G, QW
     Route: 058
  3. RIBAVIRIN [Suspect]
     Indication: HEPATITIS C
     Dosage: UNK
     Route: 048
  4. ADVIL [Concomitant]
     Route: 048

REACTIONS (7)
  - Alopecia [Unknown]
  - Chest pain [Unknown]
  - Breast pain [Unknown]
  - Anorectal discomfort [Unknown]
  - Rash [Unknown]
  - Anaemia [Unknown]
  - Vomiting [Unknown]
